FAERS Safety Report 21184594 (Version 1)
Quarter: 2022Q3

REPORT INFORMATION
  Report Type: Spontaneous
  Country: IT (occurrence: IT)
  Receive Date: 20220808
  Receipt Date: 20220808
  Transmission Date: 20221027
  Serious: Yes (Life-Threatening, Hospitalization, Other)
  Sender: FDA-Public Use
  Company Number: IT-MACLEODS PHARMA UK LTD-MAC2022036455

PATIENT
  Sex: Female

DRUGS (6)
  1. ESCITALOPRAM [Suspect]
     Active Substance: ESCITALOPRAM OXALATE
     Indication: Major depression
     Dosage: 10 MILLIGRAM, QD (FROM CONCEPTION TO THE WEEK BEFORE DELIVERY)
     Route: 064
  2. ACETAMINOPHEN [Suspect]
     Active Substance: ACETAMINOPHEN
     Indication: Patent ductus arteriosus
     Dosage: 15 MILLIGRAM/KILOGRAM, Q6H, 15 MG/KG/DOSE
     Route: 042
  3. SODIUM CHLORIDE [Suspect]
     Active Substance: SODIUM CHLORIDE
     Indication: Pulmonary hypertension
     Dosage: 10 ML/KG
     Route: 065
  4. EPINEPHRINE [Suspect]
     Active Substance: EPINEPHRINE
     Indication: Pulmonary hypertension
     Dosage: UP TO 0.2 MICROGRAMS/KG/MIN
     Route: 065
  5. HYDROCORTISONE [Suspect]
     Active Substance: HYDROCORTISONE
     Indication: Pulmonary hypertension
     Dosage: 1 MILLIGRAM/KILOGRAM, Q6H
     Route: 065
  6. NITRIC OXIDE [Suspect]
     Active Substance: NITRIC OXIDE
     Indication: Pulmonary hypertension
     Dosage: UP TO 20 PPM
     Route: 065

REACTIONS (15)
  - Foetal exposure during pregnancy [Recovered/Resolved]
  - Drug ineffective [Unknown]
  - Unresponsive to stimuli [Recovered/Resolved]
  - Abdominal distension [Recovered/Resolved]
  - Peripheral coldness [Recovered/Resolved]
  - Livedo reticularis [Recovered/Resolved]
  - Oliguria [Recovered/Resolved]
  - Haemodynamic instability [Recovered/Resolved]
  - Metabolic acidosis [Recovered/Resolved]
  - Generalised oedema [Recovered/Resolved]
  - Anuria [Recovered/Resolved]
  - Pulmonary hypertension [Recovered/Resolved]
  - Hypoperfusion [Recovered/Resolved]
  - Premature baby [Unknown]
  - Pre-eclampsia [Unknown]
